FAERS Safety Report 6423105-2 (Version None)
Quarter: 2009Q4

REPORT INFORMATION
  Report Type: 
  Country: None (occurrence: None)
  Receive Date: 20091102
  Receipt Date: 20091021
  Transmission Date: 20100525
  Serious: No
  Sender: FDA-Public Use
  Company Number: US-ELI_LILLY_AND_COMPANY-US200910005253

PATIENT
  Sex: Male

DRUGS (2)
  1. CYMBALTA [Suspect]
     Indication: CHRONIC FATIGUE SYNDROME
     Dosage: 60 MG, UNK
     Dates: start: 20080501, end: 20090101
  2. CYMBALTA [Suspect]
     Dosage: 30 MG, UNK
     Dates: start: 20090101

REACTIONS (7)
  - BLOOD HEAVY METAL INCREASED [None]
  - FATIGUE [None]
  - LIVER DISORDER [None]
  - MUSCLE TIGHTNESS [None]
  - MUSCULAR WEAKNESS [None]
  - OFF LABEL USE [None]
  - PAIN [None]
